FAERS Safety Report 14923718 (Version 9)
Quarter: 2018Q3

REPORT INFORMATION
  Report Type: Spontaneous
  Country: IT (occurrence: IT)
  Receive Date: 20180522
  Receipt Date: 20180917
  Transmission Date: 20181010
  Serious: Yes (Other)
  Sender: FDA-Public Use
  Company Number: IT-PFIZER INC-2018198854

PATIENT
  Age: 42 Year
  Sex: Male

DRUGS (2)
  1. CARBAMAZEPINE. [Concomitant]
     Active Substance: CARBAMAZEPINE
     Indication: EPILEPSY
     Dosage: 800 MG, UNK
  2. TRIAZOLAM. [Suspect]
     Active Substance: TRIAZOLAM
     Dosage: UNK

REACTIONS (2)
  - Stupor [Recovered/Resolved]
  - Toxicity to various agents [Recovered/Resolved]
